FAERS Safety Report 6315576-7 (Version None)
Quarter: 2009Q3

REPORT INFORMATION
  Report Type: 
  Country: None (occurrence: None)
  Receive Date: 20090818
  Receipt Date: 20090813
  Transmission Date: 20100115
  Serious: Yes (Death, Other)
  Sender: FDA-Public Use
  Company Number: CERZ-1000781

PATIENT
  Age: 7 Year
  Sex: Female

DRUGS (1)
  1. CEREZYME [Suspect]
     Indication: GAUCHER'S DISEASE
     Dosage: 60 U/KG, Q2W, INTRAVENOUS
     Route: 042
     Dates: start: 19980316

REACTIONS (5)
  - CARDIAC FAILURE [None]
  - DISEASE PROGRESSION [None]
  - GAUCHER'S DISEASE [None]
  - HEART VALVE CALCIFICATION [None]
  - RESPIRATORY FAILURE [None]
